FAERS Safety Report 9494444 (Version 1)
Quarter: 2013Q3

REPORT INFORMATION
  Report Type: Spontaneous
  Country: DE (occurrence: DE)
  Receive Date: 20130903
  Receipt Date: 20130903
  Transmission Date: 20140515
  Serious: Yes (Death, Hospitalization)
  Sender: FDA-Public Use
  Company Number: PHHY2013DE095297

PATIENT
  Age: 63 Year
  Sex: 0

DRUGS (2)
  1. ALLOPURINOL [Suspect]
     Indication: METASTASIS
     Dosage: UNK
  2. VEMURAFENIB [Suspect]
     Indication: METASTASIS

REACTIONS (8)
  - Leukopenia [Fatal]
  - Staphylococcal bacteraemia [Unknown]
  - Pseudomonas infection [Unknown]
  - Tachycardia [Unknown]
  - Fatigue [Unknown]
  - Nausea [Unknown]
  - Diarrhoea [Unknown]
  - Rash maculo-papular [Unknown]
